FAERS Safety Report 24299494 (Version 1)
Quarter: 2024Q3

REPORT INFORMATION
  Report Type: Spontaneous
  Country: GB (occurrence: GB)
  Receive Date: 20240909
  Receipt Date: 20240909
  Transmission Date: 20241016
  Serious: Yes (Other)
  Sender: SANDOZ
  Company Number: GB-009507513-2110GBR003928

PATIENT
  Sex: Male

DRUGS (5)
  1. KEYTRUDA [Suspect]
     Active Substance: PEMBROLIZUMAB
     Indication: Non-small cell lung cancer
     Dosage: 1 DOSAGE FORM, Q3W (DOSE NOT REPORTED)
     Route: 065
  2. KEYTRUDA [Suspect]
     Active Substance: PEMBROLIZUMAB
     Dosage: 1 DOSAGE FORM, Q3W 1 DOSAGE FORM, Q3W (ALSO REPORTED AS TID)
     Route: 065
  3. PEMETREXED [Suspect]
     Active Substance: PEMETREXED
     Indication: Non-small cell lung cancer
     Dosage: 1 DOSAGE FORM, Q3W
     Route: 065
  4. PLATINUM [Suspect]
     Active Substance: PLATINUM
     Indication: Non-small cell lung cancer
     Dosage: UNK
     Route: 065
  5. PLATINUM [Suspect]
     Active Substance: PLATINUM
     Dosage: UNK
     Route: 065

REACTIONS (2)
  - Pneumonitis [Unknown]
  - Off label use [Unknown]
